FAERS Safety Report 19502365 (Version 3)
Quarter: 2021Q3

REPORT INFORMATION
  Report Type: Spontaneous
  Country: FR (occurrence: FR)
  Receive Date: 20210707
  Receipt Date: 20210916
  Transmission Date: 20211014
  Serious: Yes (Other)
  Sender: FDA-Public Use
  Company Number: FR-BAYER-2021-166657

PATIENT
  Age: 32 Year
  Sex: Female

DRUGS (1)
  1. MIRENA [Suspect]
     Active Substance: LEVONORGESTREL
     Dosage: 20 ?G PER DAY, CONTINUOUSLY
     Route: 015
     Dates: start: 20210219

REACTIONS (6)
  - Drug ineffective [None]
  - Abortion spontaneous [None]
  - Device expulsion [Recovered/Resolved]
  - Pregnancy with contraceptive device [Recovered/Resolved]
  - Haemorrhage in pregnancy [None]
  - Device breakage [None]

NARRATIVE: CASE EVENT DATE: 20210423
